FAERS Safety Report 22331294 (Version 1)
Quarter: 2023Q2

REPORT INFORMATION
  Report Type: Spontaneous
  Country: IT (occurrence: IT)
  Receive Date: 20230517
  Receipt Date: 20230517
  Transmission Date: 20230721
  Serious: Yes (Death)
  Sender: FDA-Public Use
  Company Number: None

PATIENT
  Age: 52 Year

DRUGS (4)
  1. ETOPOSIDE [Suspect]
     Active Substance: ETOPOSIDE
     Indication: Immunosuppression
  2. CYTARABINE [Suspect]
     Active Substance: CYTARABINE
     Indication: Immunosuppression
  3. FOTEMUSTINE [Suspect]
     Active Substance: FOTEMUSTINE
     Indication: Immunosuppression
  4. MELPHALAN [Suspect]
     Active Substance: MELPHALAN
     Indication: Immunosuppression

REACTIONS (1)
  - Meningitis bacterial [Fatal]
